FAERS Safety Report 11400924 (Version 1)
Quarter: 2015Q3

REPORT INFORMATION
  Report Type: Spontaneous
  Country: US (occurrence: US)
  Receive Date: 20150820
  Receipt Date: 20150820
  Transmission Date: 20151125
  Serious: Yes (Hospitalization, Other)
  Sender: FDA-Public Use
  Company Number: US-BAYER-2015-403405

PATIENT
  Age: 89 Year
  Sex: Male
  Weight: 69.2 kg

DRUGS (18)
  1. COMPAZINE [Suspect]
     Active Substance: PROCHLORPERAZINE MALEATE
  2. AMBIEN [Concomitant]
     Active Substance: ZOLPIDEM TARTRATE
     Indication: SLEEP DISORDER THERAPY
     Dosage: 5 MG, HS
     Route: 048
     Dates: start: 20131206
  3. DEXAMETHASONE. [Concomitant]
     Active Substance: DEXAMETHASONE
     Indication: PREMEDICATION
     Dosage: 8 MG, QD
     Route: 048
     Dates: start: 20150527, end: 20150602
  4. ALOXI [Concomitant]
     Active Substance: PALONOSETRON HYDROCHLORIDE
     Indication: PREMEDICATION
     Dosage: 0.25 MG, Q3DAYS
     Route: 042
     Dates: start: 20150527, end: 20150530
  5. ALOXI [Suspect]
     Active Substance: PALONOSETRON HYDROCHLORIDE
  6. SENNA PLUS [DOCUSATE SODIUM,SENNOSIDE A+B] [Concomitant]
     Indication: CONSTIPATION
     Dosage: 2 DF, BID
     Route: 048
  7. MIRALAX [Suspect]
     Active Substance: POLYETHYLENE GLYCOL 3350
     Indication: CONSTIPATION
     Dosage: 17 G, QD
     Route: 048
     Dates: start: 20150603, end: 20150604
  8. ^AZACITIDINE^ [Suspect]
     Active Substance: AZACITIDINE
     Indication: ACUTE MYELOID LEUKAEMIA
     Dosage: 125 MG, QD X 7 DAYS
     Route: 058
     Dates: start: 20150527, end: 20150602
  9. ^AZACITIDINE^ [Suspect]
     Active Substance: AZACITIDINE
     Indication: MYELODYSPLASTIC SYNDROME
  10. TRAMADOL. [Concomitant]
     Active Substance: TRAMADOL
     Indication: ARTHRALGIA
     Dosage: 50 MG, Q12H
     Route: 048
     Dates: start: 20150528
  11. LACTULOSE. [Suspect]
     Active Substance: LACTULOSE
  12. COLACE [Concomitant]
     Active Substance: DOCUSATE SODIUM
     Indication: CONSTIPATION
     Dosage: 2 DF, HS
     Route: 048
  13. PHENAZOPYRIDINE. [Concomitant]
     Active Substance: PHENAZOPYRIDINE
     Dosage: UNK UNK, PRN
  14. ZOLPIDEM [Concomitant]
     Active Substance: ZOLPIDEM\ZOLPIDEM TARTRATE
  15. TERAZOSIN [Concomitant]
     Active Substance: TERAZOSIN\TERAZOSIN HYDROCHLORIDE
     Indication: BENIGN PROSTATIC HYPERPLASIA
     Dosage: 2 MG, HS
     Route: 048
     Dates: start: 20131206
  16. COMPAZINE [Concomitant]
     Active Substance: PROCHLORPERAZINE MALEATE
     Indication: NAUSEA
     Dosage: 10 MG, Q6H
     Route: 048
     Dates: start: 20150527, end: 20150608
  17. SENNA PLUS [DOCUSATE SODIUM,SENNOSIDE A+B] [Concomitant]
     Indication: CONSTIPATION
     Dosage: 2 DF, HS
     Route: 048
  18. PROCHLORPERAZINE. [Concomitant]
     Active Substance: PROCHLORPERAZINE

REACTIONS (7)
  - Mobility decreased [Recovered/Resolved]
  - Haematuria traumatic [None]
  - Dysuria [None]
  - Bladder spasm [Not Recovered/Not Resolved]
  - Diarrhoea [Recovered/Resolved]
  - Urine flow decreased [None]
  - Urinary retention [Not Recovered/Not Resolved]

NARRATIVE: CASE EVENT DATE: 201506
